FAERS Safety Report 6271167-8 (Version None)
Quarter: 2009Q3

REPORT INFORMATION
  Report Type: 
  Country: None (occurrence: None)
  Receive Date: 20090717
  Receipt Date: 20090714
  Transmission Date: 20100115
  Serious: Yes (Hospitalization)
  Sender: FDA-Public Use
  Company Number: US-BIOGENIDEC-2009BI016101

PATIENT
  Age: 62 Year
  Sex: Female

DRUGS (20)
  1. TYSABRI [Suspect]
     Indication: MULTIPLE SCLEROSIS
     Route: 042
     Dates: start: 20050128, end: 20050101
  2. TYSABRI [Suspect]
     Route: 042
     Dates: start: 20070205
  3. BACLOFEN [Concomitant]
     Indication: MUSCLE SPASTICITY
     Route: 048
  4. MEXILETINE HYDROCHLORIDE [Concomitant]
     Indication: ARRHYTHMIA
     Route: 048
  5. TEGRETOL [Concomitant]
     Indication: PAIN IN EXTREMITY
     Route: 048
  6. TEGRETOL [Concomitant]
     Route: 048
  7. TEGRETOL [Concomitant]
     Route: 048
  8. PROVIGIL [Concomitant]
     Indication: FATIGUE
     Route: 048
  9. NAMENDA [Concomitant]
     Indication: COGNITIVE DISORDER
     Route: 048
  10. EFFEXOR [Concomitant]
     Indication: DEPRESSION
     Route: 048
  11. EFFEXOR [Concomitant]
     Route: 048
  12. ARICEPT [Concomitant]
     Indication: COGNITIVE DISORDER
     Route: 048
  13. BENICAR [Concomitant]
     Indication: ESSENTIAL HYPERTENSION
     Route: 048
  14. NORVASC [Concomitant]
     Indication: ESSENTIAL HYPERTENSION
     Route: 048
  15. XANAX [Concomitant]
     Indication: INSOMNIA
     Route: 048
  16. REMERON [Concomitant]
     Indication: INSOMNIA
     Route: 048
  17. DOXAZOSIN MESYLATE [Concomitant]
     Indication: ESSENTIAL HYPERTENSION
     Route: 048
  18. RESTORIL [Concomitant]
     Indication: INSOMNIA
     Route: 048
  19. ZOCOR [Concomitant]
     Route: 048
  20. MIRALAX [Concomitant]
     Indication: CONSTIPATION

REACTIONS (1)
  - INCOHERENT [None]
